FAERS Safety Report 9683443 (Version 2)
Quarter: 2013Q4

REPORT INFORMATION
  Report Type: Spontaneous
  Country: CA (occurrence: CA)
  Receive Date: 20131112
  Receipt Date: 20131112
  Transmission Date: 20140711
  Serious: Yes (Other)
  Sender: FDA-Public Use
  Company Number: CA-UCBSA-095384

PATIENT
  Age: 24 Year
  Sex: Female
  Weight: 54.5 kg

DRUGS (2)
  1. CIMZIA [Suspect]
     Indication: POLYARTHRITIS
     Route: 058
     Dates: start: 20121129, end: 20130715
  2. CIMZIA [Suspect]
     Indication: RHEUMATOID ARTHRITIS
     Route: 058
     Dates: start: 20121129, end: 20130715

REACTIONS (2)
  - Abortion spontaneous [Unknown]
  - Pregnancy [Recovered/Resolved]
